FAERS Safety Report 5008039-2 (Version None)
Quarter: 2006Q2

REPORT INFORMATION
  Report Type: 
  Country: None (occurrence: None)
  Receive Date: 20060404
  Receipt Date: 20050630
  Transmission Date: 20061013
  Serious: Yes (Other)
  Sender: FDA-Public Use
  Company Number: 2005077264

PATIENT
  Age: 22 Year
  Sex: Female

DRUGS (4)
  1. GEODON [Suspect]
     Indication: PSYCHOTIC DISORDER
     Dosage: 160 MG (80 MG, 2 IN 1 D), ORAL
     Route: 048
     Dates: start: 20050420, end: 20050428
  2. ABILIFY [Suspect]
     Dosage: 30 MG (30 MG, )
  3. LAMICTAL [Concomitant]
  4. GABITRIL [Concomitant]

REACTIONS (4)
  - CONVULSION [None]
  - EPISTAXIS [None]
  - HEADACHE [None]
  - PSYCHOTIC DISORDER [None]
